FAERS Safety Report 9142912 (Version 1)
Quarter: 2013Q1

REPORT INFORMATION
  Report Type: Spontaneous
  Country: US (occurrence: US)
  Receive Date: 20130306
  Receipt Date: 20130306
  Transmission Date: 20140127
  Serious: No
  Sender: FDA-Public Use
  Company Number: US-PFIZER INC-2013074398

PATIENT
  Age: 64 Year
  Sex: Female
  Weight: 72.56 kg

DRUGS (3)
  1. EFFEXOR [Suspect]
     Indication: MENTAL DISORDER
     Dosage: 37.5 MG, 2X/DAY
     Route: 048
  2. NEURONTIN [Suspect]
     Indication: INSOMNIA
     Dosage: 300 MG, AS NEEDED
     Route: 048
  3. LISINOPRIL [Concomitant]
     Indication: HYPERTENSION
     Dosage: UNK

REACTIONS (4)
  - Off label use [Unknown]
  - Cystitis [Unknown]
  - Back pain [Unknown]
  - Stress [Unknown]
